FAERS Safety Report 5738810-0 (Version None)
Quarter: 2008Q2

REPORT INFORMATION
  Report Type: 
  Country: None (occurrence: None)
  Receive Date: 20080515
  Receipt Date: 20080317
  Transmission Date: 20081010
  Serious: No
  Sender: FDA-Public Use
  Company Number: A0715803A

PATIENT
  Age: 63 Year
  Sex: Female

DRUGS (3)
  1. VERAMYST [Suspect]
     Indication: SINUS DISORDER
     Dosage: 2SPR UNKNOWN
     Route: 045
     Dates: start: 20070801
  2. SINGULAIR [Concomitant]
  3. ZYRTEC [Concomitant]

REACTIONS (4)
  - EPISTAXIS [None]
  - NASAL ULCER [None]
  - RHINALGIA [None]
  - SINUSITIS [None]
